FAERS Safety Report 16246496 (Version 1)
Quarter: 2019Q2

REPORT INFORMATION
  Report Type: Report from Study
  Country: None (occurrence: CO)
  Receive Date: 20190427
  Receipt Date: 20190427
  Transmission Date: 20190711
  Serious: Yes (Hospitalization, Other)
  Sender: FDA-Public Use
  Company Number: CO-ABBVIE-19K-036-2761252-00

PATIENT
  Age: 68 Year
  Sex: Male
  Weight: 64 kg

DRUGS (1)
  1. HUMIRA [Suspect]
     Active Substance: ADALIMUMAB
     Indication: PSORIASIS
     Route: 058
     Dates: start: 20170921, end: 20190221

REACTIONS (4)
  - Arthralgia [Recovering/Resolving]
  - Platelet count decreased [Unknown]
  - Calculus bladder [Recovered/Resolved]
  - Weight decreased [Recovering/Resolving]

NARRATIVE: CASE EVENT DATE: 20190311
